FAERS Safety Report 25378814 (Version 1)
Quarter: 2025Q2

REPORT INFORMATION
  Report Type: Spontaneous
  Country: US (occurrence: US)
  Receive Date: 20250530
  Receipt Date: 20250530
  Transmission Date: 20250716
  Serious: No
  Sender: CIPLA
  Company Number: US-CIPLA LTD.-2024US05861

PATIENT

DRUGS (3)
  1. ALBUTEROL [Suspect]
     Active Substance: ALBUTEROL
     Indication: Pneumonia
     Dates: start: 2023
  2. ALBUTEROL [Suspect]
     Active Substance: ALBUTEROL
     Dosage: 90 MICROGRAM, BID
     Dates: start: 20240422
  3. LEVOTHYROXINE [Concomitant]
     Active Substance: LEVOTHYROXINE
     Indication: Product used for unknown indication
     Route: 065

REACTIONS (7)
  - Productive cough [Not Recovered/Not Resolved]
  - Chest discomfort [Not Recovered/Not Resolved]
  - Lung disorder [Not Recovered/Not Resolved]
  - Off label use [Unknown]
  - Device delivery system issue [Unknown]
  - Product quality issue [Unknown]
  - Oropharyngeal discomfort [Unknown]

NARRATIVE: CASE EVENT DATE: 20230101
